FAERS Safety Report 19087021 (Version 1)
Quarter: 2021Q2

REPORT INFORMATION
  Report Type: Spontaneous
  Country: US (occurrence: US)
  Receive Date: 20210402
  Receipt Date: 20210402
  Transmission Date: 20210717
  Serious: Yes (Hospitalization)
  Sender: FDA-Public Use
  Company Number: None

PATIENT
  Age: 57 Year
  Sex: Male
  Weight: 49.4 kg

DRUGS (6)
  1. CYTARABINE. [Suspect]
     Active Substance: CYTARABINE
     Dates: end: 20210218
  2. SPRYCEL [Suspect]
     Active Substance: DASATINIB
     Dates: end: 20210322
  3. MESNA. [Suspect]
     Active Substance: MESNA
     Dates: end: 20210221
  4. METHOTREXATE. [Suspect]
     Active Substance: METHOTREXATE
     Dates: end: 20210311
  5. PREDNISONE. [Suspect]
     Active Substance: PREDNISONE
     Dates: end: 20210217
  6. VINCRISTINE SULFATE. [Suspect]
     Active Substance: VINCRISTINE SULFATE
     Dates: end: 20210221

REACTIONS (9)
  - Faeces discoloured [None]
  - Diarrhoea [None]
  - Haemoglobin decreased [None]
  - Haemorrhoids [None]
  - Dizziness [None]
  - Diverticulum [None]
  - Platelet count decreased [None]
  - Occult blood positive [None]
  - Gastric disorder [None]

NARRATIVE: CASE EVENT DATE: 20210322
